FAERS Safety Report 16060324 (Version 1)
Quarter: 2019Q1

REPORT INFORMATION
  Report Type: Report from Study
  Country: US (occurrence: US)
  Receive Date: 20190312
  Receipt Date: 20190312
  Transmission Date: 20190418
  Serious: No
  Sender: FDA-Public Use
  Company Number: PHEH2019US009974

PATIENT
  Sex: Male
  Weight: 113.38 kg

DRUGS (1)
  1. COSENTYX [Suspect]
     Active Substance: SECUKINUMAB
     Indication: PSORIASIS
     Dosage: 300 MG, OTHER (EVERY WEEK FOR 5 WEEKS AS DIRECTED)
     Route: 058
     Dates: start: 201710

REACTIONS (1)
  - Haemoglobin decreased [Unknown]
